FAERS Safety Report 11654738 (Version 1)
Quarter: 2015Q4

REPORT INFORMATION
  Report Type: Spontaneous
  Country: US (occurrence: None)
  Receive Date: 20151022
  Receipt Date: 20151022
  Transmission Date: 20160304
  Serious: Yes (Disabling)
  Sender: FDA-Public Use
  Company Number: None

PATIENT
  Age: 50 Year
  Sex: Female
  Weight: 57.15 kg

DRUGS (2)
  1. BELSOMRA [Suspect]
     Active Substance: SUVOREXANT
     Indication: INSOMNIA
     Route: 048
     Dates: start: 20151018, end: 20151019
  2. XANAX [Concomitant]
     Active Substance: ALPRAZOLAM

REACTIONS (8)
  - Diarrhoea [None]
  - Fear [None]
  - Nervousness [None]
  - Thirst [None]
  - Chills [None]
  - Heart rate increased [None]
  - Panic attack [None]
  - Suicidal behaviour [None]

NARRATIVE: CASE EVENT DATE: 20151019
